FAERS Safety Report 16741227 (Version 1)
Quarter: 2019Q3

REPORT INFORMATION
  Report Type: Report from Study
  Country: US (occurrence: US)
  Receive Date: 20190826
  Receipt Date: 20190826
  Transmission Date: 20191005
  Serious: Yes (Other)
  Sender: FDA-Public Use
  Company Number: US-ASTRAZENECA-2019SE70029

PATIENT
  Age: 27232 Day
  Sex: Male
  Weight: 93 kg

DRUGS (4)
  1. BRILINTA [Suspect]
     Active Substance: TICAGRELOR
     Indication: STENT PLACEMENT
     Route: 048
     Dates: start: 20190109, end: 20190514
  2. ATORVASTATIN [Concomitant]
     Active Substance: ATORVASTATIN
     Indication: STENT PLACEMENT
  3. BRILINTA [Suspect]
     Active Substance: TICAGRELOR
     Indication: ARTERIOSCLEROSIS
     Route: 048
     Dates: start: 20190109, end: 20190514
  4. ASPIRIN. [Concomitant]
     Active Substance: ASPIRIN

REACTIONS (3)
  - Productive cough [Recovered/Resolved]
  - Gait disturbance [Unknown]
  - Dyspnoea [Recovered/Resolved]

NARRATIVE: CASE EVENT DATE: 20190220
